FAERS Safety Report 7356430-1 (Version None)
Quarter: 2011Q1

REPORT INFORMATION
  Report Type: 
  Country: None (occurrence: None)
  Receive Date: 20110316
  Receipt Date: 20110301
  Transmission Date: 20110831
  Serious: Yes (Other)
  Sender: FDA-Public Use
  Company Number: US-BAYER-201013964BCC

PATIENT
  Sex: Female

DRUGS (1)
  1. MIDOL [Suspect]
     Indication: PRODUCT USED FOR UNKNOWN INDICATION
     Route: 048

REACTIONS (1)
  - ANAPHYLACTIC REACTION [None]
